FAERS Safety Report 8796965 (Version 3)
Quarter: 2013Q1

REPORT INFORMATION
  Report Type: Spontaneous
  Country: GR (occurrence: GR)
  Receive Date: 20120919
  Receipt Date: 20130205
  Transmission Date: 20140127
  Serious: Yes (Other)
  Sender: FDA-Public Use
  Company Number: GR-GLAXOSMITHKLINE-B0830215A

PATIENT
  Age: 56 Year
  Sex: Male

DRUGS (1)
  1. ARZERRA [Suspect]
     Indication: CHRONIC LYMPHOCYTIC LEUKAEMIA
     Route: 065
     Dates: start: 201207, end: 201208

REACTIONS (2)
  - Hepatitis B [Recovering/Resolving]
  - Lymphadenopathy [Not Recovered/Not Resolved]
